FAERS Safety Report 9328979 (Version 1)
Quarter: 2013Q2

REPORT INFORMATION
  Report Type: Spontaneous
  Country: US (occurrence: US)
  Receive Date: 20130604
  Receipt Date: 20130604
  Transmission Date: 20140414
  Serious: No
  Sender: FDA-Public Use
  Company Number: US-SANOFI-AVENTIS-2013SA039892

PATIENT
  Sex: Male

DRUGS (4)
  1. LANTUS [Suspect]
     Dosage: DOSE:4 UNIT(S)
  2. LANTUS [Suspect]
     Dosage: DOSE:8 UNIT(S)
  3. HUMULIN N [Concomitant]
  4. HUMULIN 70/30 [Concomitant]

REACTIONS (2)
  - Pollakiuria [Unknown]
  - Drug dose omission [Unknown]
